FAERS Safety Report 10005323 (Version 2)
Quarter: 2014Q1

REPORT INFORMATION
  Report Type: Report from Study
  Country: FR (occurrence: FR)
  Receive Date: 20140313
  Receipt Date: 20140313
  Transmission Date: 20141002
  Serious: Yes (Hospitalization)
  Sender: FDA-Public Use
  Company Number: FR-ROCHE-1164269

PATIENT
  Age: 54 Year
  Sex: Male

DRUGS (9)
  1. RITUXIMAB [Suspect]
     Indication: RHEUMATOID ARTHRITIS
     Dosage: DAY 15 DOSE RECEIVED ON 10-APR-2008
     Route: 042
     Dates: start: 20080328
  2. RITUXIMAB [Suspect]
     Dosage: DAY 15: ON 10-NOV-2008
     Route: 042
     Dates: start: 20081027
  3. RITUXIMAB [Suspect]
     Dosage: DAY 15: RECEIVED ON  09/FEB/2010
     Route: 042
     Dates: start: 20100125
  4. TOCILIZUMAB [Suspect]
     Indication: RHEUMATOID ARTHRITIS
     Route: 065
     Dates: start: 20101019
  5. METHOTREXATE [Concomitant]
     Dosage: 15MH/W
     Route: 065
     Dates: start: 20080410
  6. CORTANCYL [Concomitant]
     Route: 065
     Dates: start: 20080410
  7. ORENCIA [Concomitant]
  8. CIMZIA [Concomitant]
  9. ENBREL [Concomitant]

REACTIONS (4)
  - Lung disorder [Recovered/Resolved]
  - Asthenia [Recovered/Resolved]
  - Gastroenteritis [Recovered/Resolved]
  - Hypertension [Not Recovered/Not Resolved]
